FAERS Safety Report 14424192 (Version 4)
Quarter: 2018Q2

REPORT INFORMATION
  Report Type: Spontaneous
  Country: JP (occurrence: JP)
  Receive Date: 20180123
  Receipt Date: 20180522
  Transmission Date: 20180711
  Serious: Yes (Death, Hospitalization, Other)
  Sender: FDA-Public Use
  Company Number: JP-ASTRAZENECA-2018SE07999

PATIENT
  Age: 90 Year
  Sex: Male
  Weight: 45 kg

DRUGS (9)
  1. CARBOCISTEINE [Concomitant]
     Active Substance: CARBOCYSTEINE
     Indication: BRONCHITIS CHRONIC
     Dosage: MORNINGS, NOONS, EVENINGS
     Route: 048
     Dates: start: 20170511, end: 20180111
  2. AMITIZA [Concomitant]
     Active Substance: LUBIPROSTONE
     Indication: CONSTIPATION
     Dosage: AS REQUIRED (1 C EACH FOR CONSTIPATION)
     Route: 048
     Dates: start: 2016, end: 20180111
  3. ARTIST [Concomitant]
     Active Substance: CARVEDILOL
     Indication: CARDIAC FAILURE CHRONIC
     Dosage: MORNINGS
     Route: 048
     Dates: start: 201608, end: 20180111
  4. CHINESE TRADITIONAL MEDICINE NOS [Concomitant]
     Active Substance: UNSPECIFIED INGREDIENT
     Indication: MALNUTRITION
     Dosage: MORNINGS, NOONS, AND EVENINGS
     Route: 048
     Dates: start: 201708, end: 20180111
  5. MIYA-BM [Concomitant]
     Active Substance: CLOSTRIDIUM BUTYRICUM SPORES STRAIN M-55
     Indication: DIARRHOEA
     Dosage: DOSE UNKNOWN, MORNINGS, NOONS, AND EVENINGS
     Route: 048
     Dates: start: 2016, end: 20180111
  6. FUROSEMIDE. [Suspect]
     Active Substance: FUROSEMIDE
     Indication: CARDIAC FAILURE CHRONIC
     Route: 048
     Dates: start: 201608, end: 20180111
  7. FORXIGA [Suspect]
     Active Substance: DAPAGLIFLOZIN
     Indication: TYPE 2 DIABETES MELLITUS
     Route: 048
     Dates: start: 201708, end: 20180111
  8. TRAZENTA [Concomitant]
     Active Substance: LINAGLIPTIN
     Indication: TYPE 2 DIABETES MELLITUS
     Dosage: MORNINGS
     Route: 048
     Dates: start: 201708, end: 20180111
  9. ENSURE [Concomitant]
     Active Substance: AMINO ACIDS\DEXTROSE\ELECTROLYTES NOS\SOYBEAN OIL\VITAMINS
     Indication: MALNUTRITION
     Dosage: MORNINGS
     Route: 048
     Dates: start: 2016, end: 20180111

REACTIONS (10)
  - Hypophagia [Unknown]
  - Blood glucose increased [Unknown]
  - Urine abnormality [Unknown]
  - Acute kidney injury [Fatal]
  - Fluid intake reduced [Unknown]
  - Disseminated intravascular coagulation [Fatal]
  - Dehydration [Fatal]
  - Viral upper respiratory tract infection [Unknown]
  - Respiratory arrest [Unknown]
  - Weight decreased [Unknown]

NARRATIVE: CASE EVENT DATE: 201801
